FAERS Safety Report 24671720 (Version 1)
Quarter: 2024Q4

REPORT INFORMATION
  Report Type: Spontaneous
  Country: CH (occurrence: CH)
  Receive Date: 20241127
  Receipt Date: 20241127
  Transmission Date: 20250115
  Serious: Yes (Death, Life-Threatening, Other)
  Sender: MERCK
  Company Number: None

PATIENT
  Age: 75 Year
  Sex: Female
  Weight: 71.1 kg

DRUGS (2)
  1. KEYTRUDA [Suspect]
     Active Substance: PEMBROLIZUMAB
     Indication: Metastatic bronchial carcinoma
     Dosage: EVERY 3 WEEKS
     Route: 040
     Dates: start: 20211207, end: 20240703
  2. CEFEPIME HYDROCHLORIDE [Suspect]
     Active Substance: CEFEPIME HYDROCHLORIDE
     Indication: Cholangitis
     Dates: start: 20240828

REACTIONS (3)
  - Encephalopathy [Fatal]
  - Liver disorder [Fatal]
  - Multiple organ dysfunction syndrome [Fatal]

NARRATIVE: CASE EVENT DATE: 20240829
